FAERS Safety Report 9729419 (Version 1)
Quarter: 2013Q4

REPORT INFORMATION
  Report Type: Spontaneous
  Country: US (occurrence: US)
  Receive Date: 20131204
  Receipt Date: 20131204
  Transmission Date: 20140711
  Serious: No
  Sender: FDA-Public Use
  Company Number: US-GILEAD-2009-0021232

PATIENT
  Age: 65 Year
  Sex: Male
  Weight: 68.95 kg

DRUGS (2)
  1. LETAIRIS [Suspect]
     Indication: PULMONARY ARTERIAL HYPERTENSION
     Route: 048
     Dates: start: 20090307, end: 20090308
  2. LETAIRIS [Suspect]
     Route: 048
     Dates: start: 20090304, end: 20090306

REACTIONS (1)
  - Tremor [Recovered/Resolved]
